FAERS Safety Report 4369873-5 (Version None)
Quarter: 2004Q2

REPORT INFORMATION
  Report Type: 
  Country: None (occurrence: None)
  Receive Date: 20040526
  Receipt Date: 20040129
  Transmission Date: 20050107
  Serious: Yes (Hospitalization)
  Sender: FDA-Public Use
  Company Number: USA040157979

PATIENT
  Age: 66 Year
  Sex: Female
  Weight: 70 kg

DRUGS (2)
  1. ZYPREXA [Suspect]
     Dosage: 10 MG
  2. MELLARIL [Concomitant]

REACTIONS (4)
  - CONFUSIONAL STATE [None]
  - DYSARTHRIA [None]
  - HYPOKALAEMIA [None]
  - HYPONATRAEMIA [None]
